FAERS Safety Report 5521734-1 (Version None)
Quarter: 2007Q4

REPORT INFORMATION
  Report Type: 
  Country: None (occurrence: None)
  Receive Date: 20071120
  Receipt Date: 20071109
  Transmission Date: 20080405
  Serious: Yes (Life-Threatening, Hospitalization)
  Sender: FDA-Public Use
  Company Number: JP-JNJFOC-20070804343

PATIENT
  Sex: Male
  Weight: 57 kg

DRUGS (8)
  1. REMICADE [Suspect]
     Route: 042
  2. REMICADE [Suspect]
     Route: 042
  3. REMICADE [Suspect]
     Indication: RHEUMATOID ARTHRITIS
     Route: 042
  4. METHOTREXATE [Suspect]
     Indication: RHEUMATOID ARTHRITIS
     Route: 048
  5. PREDNISOLONE [Concomitant]
     Dosage: 5MG
     Route: 048
  6. LOXONIN [Concomitant]
     Dosage: 3TAB  1TAB
     Route: 048
  7. MUCOSTA [Concomitant]
     Dosage: 3TAB  1TAB
     Route: 048
  8. CONIEL [Concomitant]
     Dosage: IN THE MORNING
     Route: 048

REACTIONS (1)
  - PNEUMOCYSTIS JIROVECI PNEUMONIA [None]
